FAERS Safety Report 8775198 (Version 4)
Quarter: 2012Q4

REPORT INFORMATION
  Report Type: 
  Country: US (occurrence: US)
  Receive Date: 20120910
  Receipt Date: 20121129
  Transmission Date: 20130627
  Serious: Yes (Other)
  Sender: FDA-Public Use
  Company Number: US-PFIZER INC-2012221214

PATIENT
  Age: 56 Year
  Sex: Female
  Weight: 68.03 kg

DRUGS (5)
  1. LYRICA [Suspect]
     Indication: FIBROMYALGIA
     Dosage: 150 mg, 2x/day
     Route: 048
  2. HUMALOG [Concomitant]
     Indication: DIABETES
     Dosage: UNK
  3. DIOVAN [Concomitant]
     Indication: BLOOD PRESSURE HIGH
     Dosage: UNK
  4. LASIX [Concomitant]
     Indication: BLOOD PRESSURE HIGH
     Dosage: UNK
  5. INSULIN [Concomitant]
     Indication: DIABETES
     Dosage: UNK

REACTIONS (4)
  - Foot fracture [Unknown]
  - Pneumonia [Not Recovered/Not Resolved]
  - Pain [Unknown]
  - Irritability [Unknown]
